FAERS Safety Report 7339909-8 (Version None)
Quarter: 2011Q1

REPORT INFORMATION
  Report Type: 
  Country: None (occurrence: None)
  Receive Date: 20110309
  Receipt Date: 20110228
  Transmission Date: 20110831
  Serious: Yes (Hospitalization, Other)
  Sender: FDA-Public Use
  Company Number: JP-AMGEN-KDC441736

PATIENT
  Age: 63 Year
  Sex: Male
  Weight: 68 kg

DRUGS (21)
  1. NAIXAN [Concomitant]
     Indication: CANCER PAIN
     Route: 048
  2. NORVASC [Concomitant]
     Route: 048
  3. NAIXAN [Concomitant]
     Route: 048
  4. MARZULENE S [Concomitant]
     Indication: GASTRITIS
     Route: 048
  5. SIGMART [Concomitant]
     Route: 048
  6. FLUOROURACIL [Suspect]
     Indication: COLORECTAL CANCER
     Route: 040
     Dates: start: 20100701, end: 20100715
  7. CALCIUM LEVOFOLINATE [Suspect]
     Indication: COLORECTAL CANCER
     Route: 041
     Dates: start: 20100701, end: 20100715
  8. CORTICOSTEROIDS [Concomitant]
     Indication: PROPHYLAXIS
     Route: 065
  9. DIOVAN [Concomitant]
     Indication: HYPERTENSION
     Route: 048
  10. DIOVAN [Concomitant]
     Route: 048
  11. BUFFERIN [Concomitant]
     Route: 048
  12. BUFFERIN A [Concomitant]
     Indication: ANGINA PECTORIS
     Route: 048
  13. FLUOROURACIL [Suspect]
     Route: 041
     Dates: start: 20100701, end: 20100715
  14. CALCIUM CHANNEL BLOCKERS [Concomitant]
     Dosage: UNK UNK, UNK
     Route: 065
  15. ANTIHISTAMINES [Concomitant]
     Indication: PROPHYLAXIS
     Route: 065
  16. NORVASC [Concomitant]
     Indication: HYPERTENSION
     Route: 048
  17. MARZULENE S [Concomitant]
     Route: 048
  18. PANITUMUMAB [Suspect]
     Indication: COLORECTAL CANCER
     Dosage: 6 MG/KG, Q2WK
     Route: 041
     Dates: start: 20100701
  19. IRINOTECAN HYDROCHLORIDE [Suspect]
     Indication: COLORECTAL CANCER
     Route: 041
     Dates: start: 20100701, end: 20100715
  20. SIGMART [Concomitant]
     Indication: ANGINA PECTORIS
     Route: 048
  21. LEUCON [Concomitant]
     Indication: NEUTROPHIL COUNT DECREASED
     Route: 048
     Dates: end: 20100715

REACTIONS (7)
  - MYOCARDIAL INFARCTION [None]
  - STOMATITIS [None]
  - ANGINA UNSTABLE [None]
  - DRY SKIN [None]
  - DERMATITIS ACNEIFORM [None]
  - BONE MARROW FAILURE [None]
  - PARONYCHIA [None]
